FAERS Safety Report 15075302 (Version 1)
Quarter: 2018Q2

REPORT INFORMATION
  Report Type: Spontaneous
  Country: US (occurrence: US)
  Receive Date: 20180627
  Receipt Date: 20180627
  Transmission Date: 20180711
  Serious: No
  Sender: FDA-Public Use
  Company Number: US-SAOL THERAPEUTICS-2018SAO00301

PATIENT
  Age: 21 Year
  Sex: Male
  Weight: 58.5 kg

DRUGS (2)
  1. BACLOFEN. [Suspect]
     Active Substance: BACLOFEN
     Indication: MUSCLE SPASTICITY
     Dosage: 12.5 ?G, \DAY
     Route: 037
  2. BACLOFEN. [Suspect]
     Active Substance: BACLOFEN
     Indication: CEREBRAL PALSY
     Dosage: 380.4 ?G, \DAY
     Route: 037

REACTIONS (2)
  - Muscle spasticity [Unknown]
  - Device battery issue [Unknown]

NARRATIVE: CASE EVENT DATE: 20180110
